FAERS Safety Report 8118621-1 (Version None)
Quarter: 2012Q1

REPORT INFORMATION
  Report Type: 
  Country: None (occurrence: None)
  Receive Date: 20120202
  Receipt Date: 20120125
  Transmission Date: 20120608
  Serious: Yes (Hospitalization)
  Sender: FDA-Public Use
  Company Number: 1000009230

PATIENT
  Age: 82 Year
  Sex: Female

DRUGS (9)
  1. CARDIOASPIRIN (ACETYLSALICYLIC ACID) (TABLETS) (ACETYLSALICYLIC ACID) [Concomitant]
  2. ZOLOFT (SERTRALINE) (TABLETS) (SERTRALINE) [Concomitant]
  3. MEMANTINE HYDROCHLORIDE [Suspect]
     Indication: DEMENTIA ALZHEIMER'S TYPE
     Dosage: 5 MG (5 MG, 1 IN 1 D), ORAL
     Route: 048
     Dates: start: 20090911, end: 20090921
  4. DIFFUMAL (THEOPHYLLINE) (TABLETS) (THEOPHYLLINE) [Concomitant]
  5. ZYLORIC (ALLOPURINOL) (TABLETS) (ALLOPURINOL) [Concomitant]
  6. EXELON (RIVASTIGMINE) (POULTICE OR PATCH) (RIVASTIGMINE) [Concomitant]
  7. ZYPREXA (OLANZAPINE) (TABLETS) (OLANZAPINE) [Concomitant]
  8. BI EUGLUCON (METFORMIN, GLIBENCLAMIDE) (TABLETS) (METFORMIN, GLIBENCLA [Concomitant]
  9. LASIX (FUROSEMIDE) (TABLETS) (FUROSEMIDE) [Concomitant]

REACTIONS (1)
  - RESPIRATORY FAILURE [None]
